FAERS Safety Report 24429766 (Version 1)
Quarter: 2024Q4

REPORT INFORMATION
  Report Type: Spontaneous
  Country: US (occurrence: US)
  Receive Date: 20241012
  Receipt Date: 20241012
  Transmission Date: 20250115
  Serious: No
  Sender: SANOFI AVENTIS
  Company Number: US-SA-2024SA293074

PATIENT
  Sex: Female
  Weight: 106.82 kg

DRUGS (4)
  1. DUPIXENT [Suspect]
     Active Substance: DUPILUMAB
     Indication: Dermatitis atopic
     Dosage: 300 MG, QOW
     Route: 058
  2. ZEPBOUND [Concomitant]
     Active Substance: TIRZEPATIDE
  3. PANTOPRAZOLE [Concomitant]
     Active Substance: PANTOPRAZOLE
  4. DROSPIRENONE [Concomitant]
     Active Substance: DROSPIRENONE

REACTIONS (4)
  - Blister [Recovering/Resolving]
  - Therapeutic response shortened [Recovering/Resolving]
  - Dry skin [Not Recovered/Not Resolved]
  - Pruritus [Recovering/Resolving]
